FAERS Safety Report 5291323-5 (Version None)
Quarter: 2007Q2

REPORT INFORMATION
  Report Type: 
  Country: None (occurrence: None)
  Receive Date: 20070403
  Receipt Date: 20070320
  Transmission Date: 20071010
  Serious: Yes (Death)
  Sender: FDA-Public Use
  Company Number: POMP-10966

PATIENT
  Age: 10 Month
  Sex: Female
  Weight: 7.4 kg

DRUGS (8)
  1. MYOZYME [Suspect]
     Indication: GLYCOGEN STORAGE DISEASE TYPE II
     Dosage: 20 MG/KG Q2WKS IV
     Route: 042
     Dates: start: 20060927
  2. CARVEDILOL [Concomitant]
  3. CAPTOPRIL [Concomitant]
  4. RANITIDINE [Concomitant]
  5. PROTOVIT [Concomitant]
  6. FERROUS SULFATE [Concomitant]
  7. ASCORBIC ACID [Concomitant]
  8. ZINC SULFATE [Concomitant]

REACTIONS (17)
  - BRADYCARDIA [None]
  - BRAIN HERNIATION [None]
  - BRAIN OEDEMA [None]
  - CARDIOGENIC SHOCK [None]
  - CYANOSIS [None]
  - DISEASE PROGRESSION [None]
  - GASTROINTESTINAL HAEMORRHAGE [None]
  - HAEMATOCRIT DECREASED [None]
  - HAEMOGLOBIN DECREASED [None]
  - HYPERTROPHIC CARDIOMYOPATHY [None]
  - MALNUTRITION [None]
  - NO THERAPEUTIC RESPONSE [None]
  - PLATELET COUNT INCREASED [None]
  - PNEUMOTHORAX [None]
  - PYREXIA [None]
  - RESPIRATORY RATE INCREASED [None]
  - VENTRICULAR FIBRILLATION [None]
